FAERS Safety Report 15266311 (Version 1)
Quarter: 2018Q3

REPORT INFORMATION
  Report Type: Spontaneous
  Country: CA (occurrence: CA)
  Receive Date: 20180810
  Receipt Date: 20180810
  Transmission Date: 20181010
  Serious: Yes (Other)
  Sender: FDA-Public Use
  Company Number: CA-BAYER-2018-145858

PATIENT
  Age: 46 Year
  Sex: Female

DRUGS (2)
  1. ZOLOFT [Concomitant]
     Active Substance: SERTRALINE HYDROCHLORIDE
     Route: 048
  2. MIRENA [Suspect]
     Active Substance: LEVONORGESTREL
     Indication: MENSTRUAL CYCLE MANAGEMENT
     Dosage: 20 MCG/24HR, CONT
     Route: 015

REACTIONS (11)
  - Dyspareunia [Unknown]
  - Nervousness [Unknown]
  - Weight increased [Unknown]
  - Fatigue [Unknown]
  - Vaginal haemorrhage [Unknown]
  - Anxiety [Unknown]
  - Abdominal pain [Unknown]
  - Alopecia [Unknown]
  - Insomnia [Unknown]
  - Mood swings [Unknown]
  - Depression [Unknown]
